FAERS Safety Report 7748758-8 (Version None)
Quarter: 2011Q3

REPORT INFORMATION
  Report Type: 
  Country: None (occurrence: None)
  Receive Date: 20110913
  Receipt Date: 20110913
  Transmission Date: 20111222
  Serious: Yes (Hospitalization)
  Sender: FDA-Public Use
  Company Number: None

PATIENT
  Age: 86 Year
  Sex: Female
  Weight: 57.1 kg

DRUGS (2)
  1. LOVENOX [Suspect]
     Indication: THROMBOSIS PROPHYLAXIS
     Dosage: 40MG DAILY SUBCUTANEOUS : 30MG DAILY SUBCUTANEOUS
     Route: 058
     Dates: start: 20110910, end: 20110912
  2. LOVENOX [Suspect]
     Indication: THROMBOSIS PROPHYLAXIS
     Dosage: 40MG DAILY SUBCUTANEOUS : 30MG DAILY SUBCUTANEOUS
     Route: 058
     Dates: start: 20110828, end: 20110909

REACTIONS (5)
  - ECCHYMOSIS [None]
  - HAEMORRHAGE [None]
  - INJECTION SITE HAEMATOMA [None]
  - OCCULT BLOOD POSITIVE [None]
  - LACERATION [None]
